FAERS Safety Report 10501345 (Version 1)
Quarter: 2014Q4

REPORT INFORMATION
  Report Type: Spontaneous
  Country: GB (occurrence: GB)
  Receive Date: 20141007
  Receipt Date: 20141007
  Transmission Date: 20150528
  Serious: Yes (Life-Threatening, Hospitalization)
  Sender: FDA-Public Use
  Company Number: GB-JNJFOC-20140926192

PATIENT
  Age: 44 Year
  Sex: Male

DRUGS (3)
  1. XARELTO [Suspect]
     Active Substance: RIVAROXABAN
     Indication: EMBOLISM VENOUS
     Route: 048
     Dates: start: 20140913, end: 20140916
  2. XARELTO [Suspect]
     Active Substance: RIVAROXABAN
     Indication: DEEP VEIN THROMBOSIS
     Route: 048
     Dates: start: 20140913, end: 20140916
  3. OLANZAPINE. [Concomitant]
     Active Substance: OLANZAPINE
     Route: 065

REACTIONS (6)
  - Pulmonary haemorrhage [Recovering/Resolving]
  - Haemoglobin decreased [Unknown]
  - Dyspnoea [Unknown]
  - Haemoptysis [Unknown]
  - Oxygen saturation decreased [Unknown]
  - Drug administration error [Unknown]

NARRATIVE: CASE EVENT DATE: 20140916
